FAERS Safety Report 11591875 (Version 4)
Quarter: 2015Q4

REPORT INFORMATION
  Report Type: Spontaneous
  Country: ES (occurrence: ES)
  Receive Date: 20151005
  Receipt Date: 20151125
  Transmission Date: 20160304
  Serious: Yes (Hospitalization)
  Sender: FDA-Public Use
  Company Number: ES-ROCHE-1641652

PATIENT
  Age: 68 Year
  Sex: Male

DRUGS (4)
  1. ALMAX [Concomitant]
  2. VISMODEGIB [Suspect]
     Active Substance: VISMODEGIB
     Indication: BASAL CELL CARCINOMA
     Route: 065
     Dates: start: 20150317, end: 201507
  3. OMEPRAZOL [Interacting]
     Active Substance: OMEPRAZOLE
     Indication: PRODUCT USED FOR UNKNOWN INDICATION
     Route: 065
  4. RANITIDINE [Concomitant]
     Active Substance: RANITIDINE\RANITIDINE HYDROCHLORIDE

REACTIONS (4)
  - Drug interaction [Unknown]
  - Decreased appetite [Recovering/Resolving]
  - Adenocarcinoma gastric [Recovered/Resolved]
  - Weight decreased [Recovering/Resolving]

NARRATIVE: CASE EVENT DATE: 201504
